FAERS Safety Report 18171409 (Version 1)
Quarter: 2020Q3

REPORT INFORMATION
  Report Type: Spontaneous
  Country: US (occurrence: US)
  Receive Date: 20200819
  Receipt Date: 20200819
  Transmission Date: 20201103
  Serious: No
  Sender: FDA-Public Use
  Company Number: US-TEVA-2020-US-1816840

PATIENT
  Sex: Female

DRUGS (1)
  1. ALYQ [Suspect]
     Active Substance: TADALAFIL
     Route: 065

REACTIONS (3)
  - Dyspnoea [Unknown]
  - Feeling abnormal [Unknown]
  - Product substitution issue [Unknown]
